FAERS Safety Report 4829255-6 (Version None)
Quarter: 2005Q4

REPORT INFORMATION
  Report Type: 
  Country: None (occurrence: None)
  Receive Date: 20051116
  Receipt Date: 20050307
  Transmission Date: 20060501
  Serious: Yes (Death, Congenital Anomaly)
  Sender: FDA-Public Use
  Company Number: US-GLAXOSMITHKLINE-A0549737A

PATIENT
  Sex: Female
  Weight: 1 kg

DRUGS (1)
  1. LAMICTAL [Suspect]
     Indication: EPILEPSY
     Dosage: 400MG PER DAY

REACTIONS (7)
  - CHROMOSOME ABNORMALITY [None]
  - DRUG EXPOSURE DURING PREGNANCY [None]
  - FOETAL GROWTH RETARDATION [None]
  - GASTRIC DISORDER [None]
  - HEART DISEASE CONGENITAL [None]
  - OLIGOHYDRAMNIOS [None]
  - WOLF-HIRSCHHORN SYNDROME [None]
